FAERS Safety Report 6947131-X (Version None)
Quarter: 2010Q3

REPORT INFORMATION
  Report Type: 
  Country: None (occurrence: None)
  Receive Date: 20100827
  Receipt Date: 20090828
  Transmission Date: 20110219
  Serious: No
  Sender: FDA-Public Use
  Company Number: US-ABBOTT-09P-163-0594824-00

PATIENT
  Sex: Female
  Weight: 67.192 kg

DRUGS (16)
  1. NIASPAN [Suspect]
     Indication: BLOOD CHOLESTEROL INCREASED
     Dates: start: 20090701, end: 20090701
  2. NIASPAN [Suspect]
     Dates: start: 20090819
  3. ZETIA [Concomitant]
     Indication: BLOOD CHOLESTEROL INCREASED
  4. CRESTOR [Concomitant]
     Indication: BLOOD CHOLESTEROL INCREASED
  5. LISINOPRIL [Concomitant]
     Indication: HYPERTENSION
  6. METOPROLOL [Concomitant]
     Indication: HYPERTENSION
  7. ISOSORBIDE [Concomitant]
     Indication: CHEST PAIN
  8. RESTASIS [Concomitant]
     Indication: KERATOCONJUNCTIVITIS SICCA
  9. AMITRIPTYLINE HCL [Concomitant]
     Indication: MIGRAINE
  10. CLIMARA [Concomitant]
     Indication: HORMONE REPLACEMENT THERAPY
  11. VITAMIN B [Concomitant]
     Indication: ROUTINE HEALTH MAINTENANCE
  12. FOLIC ACID [Concomitant]
     Indication: ROUTINE HEALTH MAINTENANCE
  13. CALCIUM [Concomitant]
     Indication: OSTEOPOROSIS
  14. FISH OIL [Concomitant]
     Indication: ROUTINE HEALTH MAINTENANCE
  15. ASPIRIN [Concomitant]
     Indication: PROPHYLAXIS
  16. ASPIRIN [Concomitant]
     Indication: FLUSHING

REACTIONS (1)
  - PRURITUS [None]
